FAERS Safety Report 7088675-2 (Version None)
Quarter: 2010Q4

REPORT INFORMATION
  Report Type: 
  Country: None (occurrence: None)
  Receive Date: 20101108
  Receipt Date: 20101028
  Transmission Date: 20110411
  Serious: Yes (Death)
  Sender: FDA-Public Use
  Company Number: JP-BAYER-201014707BYL

PATIENT
  Age: 64 Year
  Sex: Male
  Weight: 84 kg

DRUGS (5)
  1. NEXAVAR [Suspect]
     Indication: HEPATIC NEOPLASM MALIGNANT
     Dosage: TOTAL DAILY DOSE: 400 MG  UNIT DOSE: 200 MG
     Route: 048
     Dates: start: 20100825, end: 20100909
  2. NEXAVAR [Suspect]
     Dosage: UNIT DOSE: 200 MG
     Route: 048
     Dates: start: 20101001, end: 20101008
  3. ALLEGRA [Concomitant]
     Dosage: UNIT DOSE: 60 MG
     Route: 048
     Dates: start: 20100825, end: 20100909
  4. ADALAT CC [Concomitant]
     Dosage: UNIT DOSE: 20 MG
     Route: 048
     Dates: start: 20100825
  5. GLYCYRRHIZIN [Concomitant]
     Route: 065

REACTIONS (4)
  - BLOOD CREATINE PHOSPHOKINASE INCREASED [None]
  - HEPATIC NEOPLASM MALIGNANT [None]
  - HEPATORENAL FAILURE [None]
  - PYREXIA [None]
